FAERS Safety Report 5174210-2 (Version None)
Quarter: 2006Q4

REPORT INFORMATION
  Report Type: 
  Country: None (occurrence: None)
  Receive Date: 20061214
  Receipt Date: 20061204
  Transmission Date: 20070319
  Serious: Yes (Death)
  Sender: FDA-Public Use
  Company Number: US-JNJFOC-20061005886

PATIENT
  Sex: Male
  Weight: 91.63 kg

DRUGS (8)
  1. FENTANYL TRANSDERMAL SYSTEM [Suspect]
     Indication: PULMONARY FIBROSIS
     Route: 062
  2. DIOVAN [Concomitant]
     Indication: BLOOD PRESSURE
     Route: 048
  3. TOPROL-XL [Concomitant]
     Indication: BLOOD PRESSURE
     Dosage: 1.5X25MG TABLETS
     Route: 048
  4. ASPIRIN [Concomitant]
     Indication: CARDIAC DISORDER
     Route: 048
  5. NASAREL [Concomitant]
     Indication: DYSPNOEA
     Dosage: 1 SQUIRT TWICE A DAY
     Route: 045
  6. SPIRIVA [Concomitant]
     Indication: DYSPNOEA
     Route: 065
  7. NEXIUM [Concomitant]
     Indication: DRUG USE FOR UNKNOWN INDICATION
     Route: 048
  8. MULTI-VITAMIN [Concomitant]
     Indication: NUTRITIONAL SUPPORT
     Route: 048

REACTIONS (2)
  - SOMNOLENCE [None]
  - TERMINAL STATE [None]
